FAERS Safety Report 8748472 (Version 2)
Quarter: 2012Q4

REPORT INFORMATION
  Report Type: 
  Country: ZA (occurrence: ZA)
  Receive Date: 20120827
  Receipt Date: 20120921
  Transmission Date: 20130627
  Serious: Yes (Hospitalization)
  Sender: FDA-Public Use
  Company Number: ZA-ROCHE-1106749

PATIENT
  Age: 41 Year
  Sex: Female

DRUGS (9)
  1. CELLCEPT [Suspect]
     Indication: PRODUCT USED FOR UNKNOWN INDICATION
     Route: 065
  2. CELLCEPT [Suspect]
     Route: 065
  3. CELLCEPT [Suspect]
     Route: 065
  4. PREDNISONE [Concomitant]
     Route: 065
  5. PROGRAF [Concomitant]
     Route: 065
  6. PROGRAF [Concomitant]
     Route: 065
  7. BACTRIM [Concomitant]
     Indication: PROPHYLAXIS
     Dosage: drug discontinued
     Route: 065
  8. OMEPRAZOLE [Concomitant]
     Indication: PROPHYLAXIS
     Dosage: drug discontinued
     Route: 065
  9. VALCYTE [Concomitant]
     Indication: PROPHYLAXIS
     Dosage: drug discontinued
     Route: 065

REACTIONS (3)
  - Pyelonephritis [Recovered/Resolved]
  - Gastritis [Unknown]
  - White blood cell count decreased [Recovering/Resolving]
